FAERS Safety Report 17705724 (Version 1)
Quarter: 2020Q2

REPORT INFORMATION
  Report Type: Spontaneous
  Country: US (occurrence: US)
  Receive Date: 20200424
  Receipt Date: 20200424
  Transmission Date: 20200714
  Serious: Yes (Other)
  Sender: FDA-Public Use
  Company Number: US-SA-2020SA105753

PATIENT
  Age: 48 Year
  Sex: Female

DRUGS (7)
  1. GABAPENTIN. [Concomitant]
     Active Substance: GABAPENTIN
  2. VASCEPA [Concomitant]
     Active Substance: ICOSAPENT ETHYL
  3. LANTUS [Concomitant]
     Active Substance: INSULIN GLARGINE
  4. PLAVIX [Concomitant]
     Active Substance: CLOPIDOGREL BISULFATE
     Dosage: 75 MG, QD
  5. PRALUENT [Suspect]
     Active Substance: ALIROCUMAB
     Dosage: UNK
     Dates: start: 201802
  6. ASPIRINE [Concomitant]
     Active Substance: ASPIRIN
     Dosage: UNK, QD (STRENGTH: 81 UNITS UNKNOWN)
  7. PEPCID [Concomitant]
     Active Substance: FAMOTIDINE
     Dosage: 20 MG, QD

REACTIONS (1)
  - Angioedema [Unknown]
